FAERS Safety Report 9251768 (Version 3)
Quarter: 2015Q2

REPORT INFORMATION
  Report Type: Spontaneous
  Country: US (occurrence: US)
  Receive Date: 20130424
  Receipt Date: 20150522
  Transmission Date: 20150821
  Serious: Yes (Other)
  Sender: FDA-Public Use
  Company Number: US-JNJFOC-20110512319

PATIENT
  Sex: Male

DRUGS (1)
  1. LEVAQUIN [Suspect]
     Active Substance: LEVOFLOXACIN
     Indication: POST PROCEDURAL INFECTION
     Route: 048

REACTIONS (6)
  - Tendon rupture [Unknown]
  - Rotator cuff syndrome [Unknown]
  - Rotator cuff syndrome [Recovering/Resolving]
  - Arthritis [Unknown]
  - Epicondylitis [Recovered/Resolved]
  - Endocrine disorder [Unknown]
